FAERS Safety Report 5819020-5 (Version None)
Quarter: 2008Q3

REPORT INFORMATION
  Report Type: 
  Country: None (occurrence: None)
  Receive Date: 20080721
  Receipt Date: 20080721
  Transmission Date: 20090109
  Serious: Yes (Hospitalization)
  Sender: FDA-Public Use
  Company Number: None

PATIENT
  Age: 52 Year
  Sex: Female
  Weight: 59.4212 kg

DRUGS (1)
  1. TREPROSTINIL 10 MG/CC, UNITED THERAPEUTICS [Suspect]
     Indication: PULMONARY ARTERIAL HYPERTENSION
     Dosage: 133 NG/KG/MIN CONTINUOUS IV DRIP
     Route: 041

REACTIONS (3)
  - CHILLS [None]
  - COUGH [None]
  - PYREXIA [None]
